FAERS Safety Report 14221257 (Version 9)
Quarter: 2018Q2

REPORT INFORMATION
  Report Type: Spontaneous
  Country: US (occurrence: US)
  Receive Date: 20171124
  Receipt Date: 20180418
  Transmission Date: 20180711
  Serious: No
  Sender: FDA-Public Use
  Company Number: US-PFIZER INC-2017505578

PATIENT
  Age: 62 Year
  Sex: Female
  Weight: 79 kg

DRUGS (12)
  1. LETROZOLE. [Concomitant]
     Active Substance: LETROZOLE
     Indication: BREAST CANCER METASTATIC
     Dosage: 2.5 MG, 1X/DAY
     Route: 048
     Dates: start: 201704
  2. VITAMIN D3 [Concomitant]
     Active Substance: CHOLECALCIFEROL
     Dosage: 2500 MG, DAILY
  3. HYDROCHLOROTHIAZIDE. [Concomitant]
     Active Substance: HYDROCHLOROTHIAZIDE
     Dosage: 50 MG, UNK
  4. TRIAMTERENE. [Concomitant]
     Active Substance: TRIAMTERENE
     Dosage: (37.5-25 MG)
  5. IBRANCE [Suspect]
     Active Substance: PALBOCICLIB
     Indication: BREAST CANCER METASTATIC
     Dosage: 125 MG, CYCLIC (21 DAYS ON AND 1 WEEK OFF)
     Route: 048
     Dates: start: 201704
  6. HYDROCODONE [Concomitant]
     Active Substance: HYDROCODONE
     Dosage: (10-325 MG)
  7. LETROZOLE. [Concomitant]
     Active Substance: LETROZOLE
     Dosage: 2.5 MG, DAILY
  8. TRIAMTERENE AND HYDROCHLOROTHIAZID [Concomitant]
     Active Substance: HYDROCHLOROTHIAZIDE\TRIAMTERENE
     Indication: BLOOD PRESSURE ABNORMAL
     Dosage: UNK, AS NEEDED (TRIAMTERENE: 37.2 MG/HYDROCHLOROTHIAZID: 25 MG)
  9. AMOXICILLIN. [Concomitant]
     Active Substance: AMOXICILLIN
     Dosage: 500 MG, UNK
  10. ESTER-C [Concomitant]
     Active Substance: CALCIUM\VITAMINS
     Dosage: 500 MG, DAILY
  11. IBRANCE [Suspect]
     Active Substance: PALBOCICLIB
     Dosage: 125 MG, CYCLIC (21 DAYS ON AND 1 WEEK OFF)
     Route: 048
     Dates: start: 201801
  12. TRIAMTERENE AND HYDROCHLOROTHIAZID [Concomitant]
     Active Substance: HYDROCHLOROTHIAZIDE\TRIAMTERENE
     Dosage: UNK, DAILY DOSE OF 5 MG/HYDROCHLOROTHIAZID: 25 MG)

REACTIONS (11)
  - Constipation [Not Recovered/Not Resolved]
  - Insomnia [Unknown]
  - Weight increased [Not Recovered/Not Resolved]
  - Pain [Not Recovered/Not Resolved]
  - Headache [Unknown]
  - Hypoaesthesia [Recovering/Resolving]
  - Disturbance in attention [Unknown]
  - Neuralgia [Not Recovered/Not Resolved]
  - Neuropathy peripheral [Unknown]
  - Gait inability [Unknown]
  - Memory impairment [Unknown]

NARRATIVE: CASE EVENT DATE: 2017
